FAERS Safety Report 4703089-5 (Version None)
Quarter: 2005Q2

REPORT INFORMATION
  Report Type: 
  Country: None (occurrence: None)
  Receive Date: 20050628
  Receipt Date: 20050628
  Transmission Date: 20051028
  Serious: Yes (Hospitalization)
  Sender: FDA-Public Use
  Company Number: None

PATIENT
  Age: 33 Year
  Sex: Female
  Weight: 58.3779 kg

DRUGS (1)
  1. CYTARABINE [Suspect]
     Dates: start: 20050527

REACTIONS (4)
  - HAEMORRHAGE [None]
  - NON-CARDIOGENIC PULMONARY OEDEMA [None]
  - PANCYTOPENIA [None]
  - PYREXIA [None]
